FAERS Safety Report 8632001 (Version 3)
Quarter: 2012Q4

REPORT INFORMATION
  Report Type: 
  Country: GB (occurrence: GB)
  Receive Date: 20120625
  Receipt Date: 20121008
  Transmission Date: 20130627
  Serious: Yes (Hospitalization, Other)
  Sender: FDA-Public Use
  Company Number: PHFR2011GB03867

PATIENT
  Sex: Male

DRUGS (4)
  1. CLOZARIL [Suspect]
     Indication: SCHIZOPHRENIA
     Route: 048
     Dates: start: 20010701
  2. CLOZARIL [Suspect]
     Dosage: 575 mg, UNK
     Route: 048
  3. CLOZARIL [Suspect]
     Dosage: 675 mg, UNK
     Route: 048
     Dates: end: 20120601
  4. CLOZARIL [Suspect]
     Dosage: UNK

REACTIONS (5)
  - Food aversion [Unknown]
  - Antipsychotic drug level increased [Recovering/Resolving]
  - Blood creatine phosphokinase increased [Recovered/Resolved]
  - Schizophrenia [Unknown]
  - Psychotic disorder [Unknown]
